FAERS Safety Report 5537391-4 (Version None)
Quarter: 2007Q4

REPORT INFORMATION
  Report Type: 
  Country: None (occurrence: None)
  Receive Date: 20071207
  Receipt Date: 20071129
  Transmission Date: 20080405
  Serious: Yes (Life-Threatening, Hospitalization, Other)
  Sender: FDA-Public Use
  Company Number: B0488840A

PATIENT
  Age: 57 Year
  Sex: Male

DRUGS (4)
  1. SERETIDE [Suspect]
     Indication: ASTHMA
     Dosage: 250MCG TWICE PER DAY
     Route: 055
     Dates: start: 20070101, end: 20070924
  2. SEREVENT [Concomitant]
     Dates: start: 20070924
  3. BECOTIDE [Concomitant]
     Dates: start: 20070924
  4. VOLUMATIC [Concomitant]

REACTIONS (2)
  - BRONCHOPNEUMONIA [None]
  - ORAL CANDIDIASIS [None]
